FAERS Safety Report 24534918 (Version 1)
Quarter: 2024Q4

REPORT INFORMATION
  Report Type: Report from Study
  Country: US (occurrence: US)
  Receive Date: 20241022
  Receipt Date: 20241022
  Transmission Date: 20250114
  Serious: Yes (Hospitalization, Other)
  Sender: JAZZ
  Company Number: US-JAZZ PHARMACEUTICALS-2022-US-038476

PATIENT
  Sex: Female

DRUGS (17)
  1. XYWAV [Suspect]
     Active Substance: CALCIUM OXYBATE\MAGNESIUM OXYBATE\POTASSIUM OXYBATE\SODIUM OXYBATE
     Indication: Narcolepsy
     Dosage: 2.25 GRAM, BID
  2. XYWAV [Suspect]
     Active Substance: CALCIUM OXYBATE\MAGNESIUM OXYBATE\POTASSIUM OXYBATE\SODIUM OXYBATE
     Indication: Cataplexy
     Dosage: 4.5 GRAM, BID
  3. XYWAV [Suspect]
     Active Substance: CALCIUM OXYBATE\MAGNESIUM OXYBATE\POTASSIUM OXYBATE\SODIUM OXYBATE
     Indication: Somnolence
  4. NITROGLYCERIN [Concomitant]
     Active Substance: NITROGLYCERIN
     Indication: Product used for unknown indication
     Dosage: UNK
     Dates: start: 20151130
  5. FLONASE ALLERGY RELIEF [Concomitant]
     Active Substance: FLUTICASONE PROPIONATE
     Indication: Product used for unknown indication
     Dosage: UNK
     Dates: start: 20151130
  6. MELATONIN [Concomitant]
     Active Substance: MELATONIN
     Indication: Product used for unknown indication
     Dosage: UNK
     Dates: start: 20151130
  7. CALCIUM + MAGNESIUM + ZINK [Concomitant]
     Indication: Product used for unknown indication
     Dosage: 0000
     Dates: start: 20151130
  8. LEVOTHYROXINE [Concomitant]
     Active Substance: LEVOTHYROXINE
     Indication: Product used for unknown indication
     Dosage: 000
     Dates: start: 20160816
  9. FLUTICASONE PROPIONATE [Concomitant]
     Active Substance: FLUTICASONE PROPIONATE
     Indication: Product used for unknown indication
     Dosage: 0000
     Dates: start: 20230320
  10. IBUPROFEN [Concomitant]
     Active Substance: IBUPROFEN
     Indication: Product used for unknown indication
     Dosage: 600 MILLIGRAM, TABLET
     Dates: start: 20151130
  11. VALACYCLOVIR HYDROCHLORIDE [Concomitant]
     Active Substance: VALACYCLOVIR HYDROCHLORIDE
     Indication: Product used for unknown indication
     Dosage: UNK
     Dates: start: 20151130
  12. PROAIR HFA [Concomitant]
     Active Substance: ALBUTEROL SULFATE
     Indication: Product used for unknown indication
     Dosage: UNK
     Dates: start: 20151130
  13. ADDERALL [Concomitant]
     Active Substance: AMPHETAMINE ASPARTATE\AMPHETAMINE SULFATE\DEXTROAMPHETAMINE SACCHARATE\DEXTROAMPHETAMINE SULFATE
     Indication: Product used for unknown indication
     Dosage: 0000
     Dates: start: 20231016
  14. ZOLPIDEM TARTRATE [Concomitant]
     Active Substance: ZOLPIDEM TARTRATE
     Indication: Product used for unknown indication
     Dosage: 0000
     Dates: start: 20231214
  15. ASPIRIN [Concomitant]
     Active Substance: ASPIRIN
     Indication: Product used for unknown indication
     Dosage: 0000
     Dates: start: 20240408
  16. FERROUS SULFATE [Concomitant]
     Active Substance: FERROUS SULFATE
     Indication: Product used for unknown indication
     Dosage: 0000
     Dates: start: 20230601
  17. VICKS NYQUIL COLD AND FLU [Concomitant]
     Active Substance: ACETAMINOPHEN\DEXTROMETHORPHAN HYDROBROMIDE\DOXYLAMINE SUCCINATE
     Indication: Product used for unknown indication
     Dosage: UNK

REACTIONS (22)
  - Pneumonia [Unknown]
  - Bronchitis [Unknown]
  - Raynaud^s phenomenon [Unknown]
  - Chest pain [Unknown]
  - Migraine [Not Recovered/Not Resolved]
  - Illness [Unknown]
  - Pulmonary mass [Unknown]
  - Heart rate increased [Unknown]
  - Abdominal pain upper [Unknown]
  - Back pain [Unknown]
  - Cough [Recovered/Resolved]
  - Vomiting [Unknown]
  - Nausea [Unknown]
  - Insomnia [Unknown]
  - Arthralgia [Unknown]
  - Diarrhoea [Unknown]
  - Headache [Unknown]
  - Dyspnoea [Recovered/Resolved]
  - Incorrect dose administered [Unknown]
  - Product administration interrupted [Unknown]
  - Extra dose administered [Unknown]
  - Drug ineffective [Unknown]

NARRATIVE: CASE EVENT DATE: 20230101
